FAERS Safety Report 21053267 (Version 2)
Quarter: 2022Q4

REPORT INFORMATION
  Report Type: Spontaneous
  Country: ZA (occurrence: ZA)
  Receive Date: 20220707
  Receipt Date: 20221123
  Transmission Date: 20230113
  Serious: Yes (Hospitalization, Other)
  Sender: FDA-Public Use
  Company Number: ZA-PFIZER INC-PV202200015393

PATIENT
  Age: 31 Year
  Sex: Female
  Weight: 95 kg

DRUGS (9)
  1. SULFASALAZINE [Suspect]
     Active Substance: SULFASALAZINE
     Indication: Rheumatoid arthritis
     Dosage: 500 MG, 2X/DAY
     Dates: start: 202010
  2. SOLU-MEDROL [Suspect]
     Active Substance: METHYLPREDNISOLONE SODIUM SUCCINATE
     Indication: Rheumatoid arthritis
     Dosage: 125 MG, ONCE/MONTHLY
     Route: 042
     Dates: start: 202010
  3. CYAMEMAZINE [Concomitant]
     Active Substance: CYAMEMAZINE
     Indication: Rheumatoid arthritis
     Dosage: 75 MG, 2X/DAY
     Dates: start: 20210916
  4. CHLOROQUINE [Concomitant]
     Active Substance: CHLOROQUINE
     Indication: Rheumatoid arthritis
     Dosage: 200 MG, DAILY
     Dates: start: 202010
  5. CYCLOPHOSPHAMIDE [Concomitant]
     Active Substance: CYCLOPHOSPHAMIDE
     Indication: Rheumatoid arthritis
     Dosage: 750 MG, (3 WEEKLY X 3)
     Route: 042
     Dates: start: 202010
  6. CYCLOPHOSPHAMIDE [Concomitant]
     Active Substance: CYCLOPHOSPHAMIDE
     Dosage: 750 MG, (MONTHLY X 3)
     Route: 042
  7. CYCLOPHOSPHAMIDE [Concomitant]
     Active Substance: CYCLOPHOSPHAMIDE
     Dosage: 500 MG, MONTHLY
     Route: 042
     Dates: start: 20210315
  8. CYCLOPHOSPHAMIDE [Concomitant]
     Active Substance: CYCLOPHOSPHAMIDE
     Dosage: 500 MG, X4 (5.75 G IN TOTAL)
     Route: 042
     Dates: start: 202105, end: 202108
  9. ZIDOVUDINE [Concomitant]
     Active Substance: ZIDOVUDINE
     Indication: Rheumatoid arthritis
     Dosage: 50 MG, DAILY
     Dates: start: 20210114, end: 20210916

REACTIONS (3)
  - Hypersensitivity [Unknown]
  - Substance-induced psychotic disorder [Unknown]
  - Drug ineffective [Unknown]

NARRATIVE: CASE EVENT DATE: 20210901
